FAERS Safety Report 9825540 (Version 2)
Quarter: 2014Q1

REPORT INFORMATION
  Report Type: Spontaneous
  Country: DE (occurrence: DE)
  Receive Date: 20140117
  Receipt Date: 20140117
  Transmission Date: 20141002
  Serious: Yes (Hospitalization)
  Sender: FDA-Public Use
  Company Number: DE-SA-2013SA122079

PATIENT
  Age: 78 Year
  Sex: Male
  Weight: 88 kg

DRUGS (5)
  1. CLOPIDOGREL BISULFATE [Suspect]
     Indication: CORONARY ARTERY DISEASE
     Route: 048
     Dates: start: 201304, end: 20130917
  2. CLOPIDOGREL BISULFATE [Suspect]
     Indication: STENT PLACEMENT
     Route: 048
     Dates: start: 201304, end: 20130917
  3. ELIQUIS [Suspect]
     Indication: ATRIAL FIBRILLATION
     Route: 048
     Dates: start: 201303, end: 20130917
  4. ASS [Concomitant]
     Indication: CORONARY ARTERY DISEASE
     Route: 048
     Dates: start: 201304, end: 20130917
  5. ASS [Concomitant]
     Indication: STENT PLACEMENT
     Route: 048
     Dates: start: 201304, end: 20130917

REACTIONS (3)
  - Acute myocardial infarction [Unknown]
  - Melaena [Recovered/Resolved]
  - Haemoglobin decreased [Unknown]
